FAERS Safety Report 21404936 (Version 1)
Quarter: 2022Q4

REPORT INFORMATION
  Report Type: Spontaneous
  Country: US (occurrence: None)
  Receive Date: 20221003
  Receipt Date: 20221003
  Transmission Date: 20230113
  Serious: Yes (Hospitalization)
  Sender: FDA-Public Use
  Company Number: None

PATIENT
  Sex: Female

DRUGS (2)
  1. LORBRENA [Suspect]
     Active Substance: LORLATINIB
     Indication: Anaplastic large-cell lymphoma
     Dosage: 100 MG DAILY BY MOUTH?
     Route: 048
     Dates: start: 202205
  2. LORBRENA [Suspect]
     Active Substance: LORLATINIB
     Indication: Anaplastic large-cell lymphoma
     Dosage: 25 MG DAILY BY MOUTH?
     Route: 048
     Dates: start: 202205

REACTIONS (1)
  - Bone marrow transplant [None]
